FAERS Safety Report 8317052-9 (Version None)
Quarter: 2012Q2

REPORT INFORMATION
  Report Type: 
  Country: None (occurrence: None)
  Receive Date: 20120427
  Receipt Date: 20120425
  Transmission Date: 20120825
  Serious: Yes (Life-Threatening)
  Sender: FDA-Public Use
  Company Number: CA-PFIZER INC-2012088358

PATIENT
  Age: 71 Year
  Sex: Male
  Weight: 70 kg

DRUGS (9)
  1. ATORVASTATIN [Concomitant]
     Indication: BLOOD CHOLESTEROL
     Dosage: 80 MG, DAILY
  2. BISOPROLOL [Concomitant]
     Indication: BLOOD PRESSURE
     Dosage: 5 MG, DAILY
     Dates: start: 20120213
  3. RANITIDINE [Concomitant]
     Indication: DYSPEPSIA
     Dosage: 150 MG DAILY
     Dates: start: 20090101
  4. EZETIMIBE [Concomitant]
     Indication: BLOOD CHOLESTEROL
     Dosage: 20 MG, UNK
     Dates: start: 20090101
  5. VARENICLINE TARTRATE [Suspect]
     Indication: SMOKING CESSATION THERAPY
     Dosage: UNK
     Route: 048
     Dates: start: 20120213, end: 20120215
  6. NITRO-DUR [Concomitant]
     Indication: CARDIAC DISORDER
     Dosage: 0.4 MG DAILY
     Dates: start: 20120124
  7. PLAVIX [Concomitant]
     Indication: BLOOD DISORDER
     Dosage: 75 MG, DAILY
     Dates: start: 20090101
  8. ASPIRIN [Concomitant]
     Indication: BLOOD DISORDER
     Dosage: 80 MG, DAILY
  9. METOPROLOL [Concomitant]
     Indication: CARDIAC DISORDER
     Dosage: 25 MG, 2X/DAY
     Dates: start: 20110101, end: 20120213

REACTIONS (4)
  - VOMITING [None]
  - NAUSEA [None]
  - INSOMNIA [None]
  - FEELING ABNORMAL [None]
